FAERS Safety Report 21755980 (Version 5)
Quarter: 2023Q1

REPORT INFORMATION
  Report Type: Spontaneous
  Country: FR (occurrence: FR)
  Receive Date: 20221220
  Receipt Date: 20230123
  Transmission Date: 20230418
  Serious: Yes (Hospitalization)
  Sender: FDA-Public Use
  Company Number: FR-AUROBINDO-AUR-APL-2022-052598

PATIENT
  Age: 82 Year
  Sex: Female

DRUGS (5)
  1. POLYETHYLENE GLYCOL 4000 [Suspect]
     Active Substance: POLYETHYLENE GLYCOL 4000
     Indication: Product used for unknown indication
     Dosage: UNK, QD IN THE MORNING
     Route: 065
  2. IRBESARTAN [Suspect]
     Active Substance: IRBESARTAN
     Indication: Product used for unknown indication
     Dosage: 75 MG, QD TAKEN IN THE MORNING
     Route: 065
  3. AMISULPRIDE [Suspect]
     Active Substance: AMISULPRIDE
     Indication: Product used for unknown indication
     Dosage: 100 MG, BID IN THE MORNING AND EVENING
     Route: 065
  4. SERTRALINE [Suspect]
     Active Substance: SERTRALINE HYDROCHLORIDE
     Indication: Product used for unknown indication
     Dosage: 75 MG QD, IN THE MORNING
     Route: 065
  5. OXAZEPAM [Suspect]
     Active Substance: OXAZEPAM
     Indication: Product used for unknown indication
     Dosage: 10 MG, QD, IN EVENING
     Route: 065

REACTIONS (7)
  - Extrapyramidal disorder [Unknown]
  - Troponin increased [Recovering/Resolving]
  - Rhabdomyolysis [Unknown]
  - Heart valve incompetence [Unknown]
  - Fall [Unknown]
  - Vitamin D deficiency [Unknown]
  - Malnutrition [Unknown]
